FAERS Safety Report 9199702 (Version 4)
Quarter: 2013Q3

REPORT INFORMATION
  Report Type: Report from Study
  Country: US (occurrence: US)
  Receive Date: 20130329
  Receipt Date: 20130920
  Transmission Date: 20140515
  Serious: Yes (Hospitalization, Other)
  Sender: FDA-Public Use
  Company Number: US-ALEXION PHARMACEUTICALS INC.-A201300567

PATIENT
  Age: 20 Year
  Sex: Female

DRUGS (1)
  1. SOLIRIS [Suspect]
     Indication: HAEMOLYTIC URAEMIC SYNDROME
     Dosage: 1200 MG, UNK
     Route: 042

REACTIONS (4)
  - Heart transplant [Unknown]
  - Cardiac failure acute [Recovering/Resolving]
  - Blood glucose fluctuation [Unknown]
  - Left ventricular dysfunction [Recovering/Resolving]
